FAERS Safety Report 23381823 (Version 3)
Quarter: 2024Q1

REPORT INFORMATION
  Report Type: Spontaneous
  Country: US (occurrence: US)
  Receive Date: 20240109
  Receipt Date: 20240205
  Transmission Date: 20240409
  Serious: Yes (Death, Other)
  Sender: FDA-Public Use
  Company Number: US-AMNEAL PHARMACEUTICALS-2023-AMRX-04619

PATIENT
  Age: 65 Year
  Sex: Male
  Weight: 108.8 kg

DRUGS (1)
  1. ADRENACLICK [Suspect]
     Active Substance: EPINEPHRINE
     Indication: Anaphylactic reaction
     Dosage: 1 DOSAGE FORM, PRN
     Route: 030
     Dates: start: 20231219, end: 20231219

REACTIONS (2)
  - Cardiac arrest [Fatal]
  - Device malfunction [Unknown]

NARRATIVE: CASE EVENT DATE: 20231219
